FAERS Safety Report 16725312 (Version 2)
Quarter: 2020Q3

REPORT INFORMATION
  Report Type: Spontaneous
  Country: US (occurrence: US)
  Receive Date: 20190821
  Receipt Date: 20200701
  Transmission Date: 20201102
  Serious: No
  Sender: FDA-Public Use
  Company Number: US-ELI_LILLY_AND_COMPANY-US201908002506

PATIENT
  Age: 28 Year
  Sex: Female

DRUGS (5)
  1. TALTZ [Suspect]
     Active Substance: IXEKIZUMAB
     Dosage: 80 MG, EVERY TWO WEEKS
     Route: 058
     Dates: start: 2018
  2. TALTZ [Suspect]
     Active Substance: IXEKIZUMAB
     Dosage: 80 MG, EVERY TWO WEEKS
     Route: 058
     Dates: start: 2018
  3. TALTZ [Suspect]
     Active Substance: IXEKIZUMAB
     Indication: PSORIASIS
     Dosage: 80 MG, EVERY TWO WEEKS
     Route: 065
     Dates: start: 2018
  4. TALTZ [Suspect]
     Active Substance: IXEKIZUMAB
     Indication: PSORIASIS
     Dosage: 80 MG, EVERY TWO WEEKS
     Route: 058
     Dates: start: 2018
  5. TALTZ [Suspect]
     Active Substance: IXEKIZUMAB
     Indication: PSORIASIS
     Dosage: 80 MG, EVERY TWO WEEKS
     Route: 065
     Dates: start: 2018

REACTIONS (6)
  - Product dose omission issue [Unknown]
  - Product dose omission issue [Unknown]
  - Scratch [Unknown]
  - Injection site pain [Unknown]
  - Psoriasis [Unknown]
  - Drug ineffective [Unknown]

NARRATIVE: CASE EVENT DATE: 20200627
